FAERS Safety Report 5259064-8 (Version None)
Quarter: 2007Q1

REPORT INFORMATION
  Report Type: 
  Country: None (occurrence: None)
  Receive Date: 20070308
  Receipt Date: 20070221
  Transmission Date: 20070707
  Serious: Yes (Death, Other)
  Sender: FDA-Public Use
  Company Number: US-PFIZER INC-2006018731

PATIENT
  Sex: Female
  Weight: 83.9 kg

DRUGS (2)
  1. BEXTRA [Suspect]
     Indication: ARTHRITIS
     Dates: start: 20041231, end: 20050130
  2. BEXTRA [Suspect]
     Indication: GOUT

REACTIONS (1)
  - MYOCARDIAL INFARCTION [None]
